FAERS Safety Report 21781241 (Version 1)
Quarter: 2022Q4

REPORT INFORMATION
  Report Type: Spontaneous
  Country: CN (occurrence: CN)
  Receive Date: 20221227
  Receipt Date: 20221227
  Transmission Date: 20230112
  Serious: Yes (Life-Threatening, Hospitalization)
  Sender: FDA-Public Use
  Company Number: None

PATIENT
  Age: 60 Year
  Sex: Female
  Weight: 79 kg

DRUGS (12)
  1. CYCLOPHOSPHAMIDE [Suspect]
     Active Substance: CYCLOPHOSPHAMIDE
     Indication: Neoplasm malignant
     Dosage: 0.85 G, QD, INJECTION, DILUTED WITH 0.9% SODIUM CHLORIDE (100 ML)
     Route: 041
     Dates: start: 20221205, end: 20221205
  2. CYCLOPHOSPHAMIDE [Suspect]
     Active Substance: CYCLOPHOSPHAMIDE
     Indication: Chemotherapy
  3. CYCLOPHOSPHAMIDE [Suspect]
     Active Substance: CYCLOPHOSPHAMIDE
     Indication: Invasive ductal breast carcinoma
  4. SODIUM CHLORIDE [Suspect]
     Active Substance: SODIUM CHLORIDE
     Indication: Medication dilution
     Dosage: 100 ML, QD (DOSAGE FORM: INJECTION), USED TO DILUTE CYCLOPHOSPHAMIDE (0.85 G)
     Route: 041
     Dates: start: 20221205, end: 20221205
  5. SODIUM CHLORIDE [Suspect]
     Active Substance: SODIUM CHLORIDE
     Dosage: 250 ML, QD (DOSAGE FORM: INJECTION), USED TO DILUTE DOCETAXEL (128 MG)
     Route: 041
     Dates: start: 20221205, end: 20221205
  6. DEXTROSE MONOHYDRATE [Suspect]
     Active Substance: DEXTROSE MONOHYDRATE
     Indication: Medication dilution
     Dosage: 250 ML, QD (DOSAGE FORM: INJECTION), USED TO DILUTE PIRARUBICIN HYDROCHLORIDE (85 MG)
     Route: 041
     Dates: start: 20221205, end: 20221205
  7. DOCETAXEL [Suspect]
     Active Substance: DOCETAXEL
     Indication: Neoplasm malignant
     Dosage: 128 MG, QD, DILUTED WITH 0.9% SODIUM CHLORIDE (250 ML)
     Route: 041
     Dates: start: 20221205, end: 20221205
  8. DOCETAXEL [Suspect]
     Active Substance: DOCETAXEL
     Indication: Chemotherapy
  9. DOCETAXEL [Suspect]
     Active Substance: DOCETAXEL
     Indication: Invasive ductal breast carcinoma
  10. PIRARUBICIN HYDROCHLORIDE [Suspect]
     Active Substance: PIRARUBICIN HYDROCHLORIDE
     Indication: Neoplasm malignant
     Dosage: 85 MG, QD, DILUTED WITH 5% GLUCOSE (250 ML)
     Route: 041
     Dates: start: 20221205, end: 20221205
  11. PIRARUBICIN HYDROCHLORIDE [Suspect]
     Active Substance: PIRARUBICIN HYDROCHLORIDE
     Indication: Chemotherapy
  12. PIRARUBICIN HYDROCHLORIDE [Suspect]
     Active Substance: PIRARUBICIN HYDROCHLORIDE
     Indication: Invasive ductal breast carcinoma

REACTIONS (2)
  - White blood cell count decreased [Recovered/Resolved]
  - Neutrophil count decreased [Recovered/Resolved]

NARRATIVE: CASE EVENT DATE: 20221213
